FAERS Safety Report 5868102-0 (Version None)
Quarter: 2008Q3

REPORT INFORMATION
  Report Type: 
  Country: None (occurrence: None)
  Receive Date: 20080902
  Receipt Date: 20080422
  Transmission Date: 20090109
  Serious: No
  Sender: FDA-Public Use
  Company Number: US-ABBOTT-08P-163-0448546-00

PATIENT
  Sex: Female
  Weight: 104.42 kg

DRUGS (3)
  1. DEPAKOTE ER [Suspect]
     Indication: EPILEPSY
     Dosage: 250MG 3 TABS THREE TIMES DAILY
     Route: 048
     Dates: start: 20000101
  2. DEPAKOTE ER [Suspect]
  3. UNKNOWN MEDICATIONS [Concomitant]
     Indication: DRUG USE FOR UNKNOWN INDICATION

REACTIONS (1)
  - WEIGHT INCREASED [None]
